FAERS Safety Report 14057463 (Version 2)
Quarter: 2018Q1

REPORT INFORMATION
  Report Type: Report from Study
  Country: US (occurrence: US)
  Receive Date: 20171006
  Receipt Date: 20180202
  Transmission Date: 20180508
  Serious: Yes (Other)
  Sender: FDA-Public Use
  Company Number: US-ALLERGAN-1756551US

PATIENT
  Age: 71 Year
  Sex: Female

DRUGS (3)
  1. CYCLOSPORINE 0.5MG/ML EML (9054X) [Suspect]
     Active Substance: CYCLOSPORINE
     Indication: DRY EYE
     Dosage: 2 GTT, BID
     Route: 047
     Dates: start: 2015
  2. PATADINE [Concomitant]
     Indication: FOREIGN BODY SENSATION IN EYES
  3. PATADINE [Concomitant]
     Indication: EYE ALLERGY
     Dosage: UNK, PRN
     Route: 047

REACTIONS (3)
  - Product storage error [Unknown]
  - Retinal disorder [Recovered/Resolved]
  - Cataract [Not Recovered/Not Resolved]

NARRATIVE: CASE EVENT DATE: 201606
